FAERS Safety Report 5034182-8 (Version None)
Quarter: 2006Q2

REPORT INFORMATION
  Report Type: 
  Country: None (occurrence: None)
  Receive Date: 20060626
  Receipt Date: 20060616
  Transmission Date: 20061013
  Serious: Yes (Other)
  Sender: FDA-Public Use
  Company Number: US-GLAXOSMITHKLINE-A0609521A

PATIENT
  Age: 54 Year
  Sex: Female

DRUGS (2)
  1. ADVAIR DISKUS 100/50 [Suspect]
     Indication: ASTHMA
     Dosage: 1PUFF TWICE PER DAY
     Route: 055
     Dates: end: 20060301
  2. VENTOLIN [Concomitant]

REACTIONS (6)
  - ASTHMA EXERCISE INDUCED [None]
  - CHEST DISCOMFORT [None]
  - DIFFICULTY IN WALKING [None]
  - DYSPNOEA [None]
  - ILL-DEFINED DISORDER [None]
  - PULMONARY OEDEMA [None]
